FAERS Safety Report 10474435 (Version 3)
Quarter: 2014Q4

REPORT INFORMATION
  Report Type: Spontaneous
  Country: US (occurrence: US)
  Receive Date: 20140924
  Receipt Date: 20141219
  Transmission Date: 20150528
  Serious: Yes (Hospitalization)
  Sender: FDA-Public Use
  Company Number: US-GILEAD-2014-0116261

PATIENT
  Age: 82 Year
  Sex: Female
  Weight: 58.96 kg

DRUGS (11)
  1. SPIRONOLACTONE. [Concomitant]
     Active Substance: SPIRONOLACTONE
  2. CARVEDILOL. [Concomitant]
     Active Substance: CARVEDILOL
  3. TYVASO [Concomitant]
     Active Substance: TREPROSTINIL
     Indication: PULMONARY HYPERTENSION
  4. XARELTO [Concomitant]
     Active Substance: RIVAROXABAN
  5. LETAIRIS [Suspect]
     Active Substance: AMBRISENTAN
     Indication: PRODUCT USED FOR UNKNOWN INDICATION
     Dosage: 5 MG, QD
     Route: 065
     Dates: start: 20140830
  6. PREDNISONE. [Concomitant]
     Active Substance: PREDNISONE
  7. TYVASO [Concomitant]
     Active Substance: TREPROSTINIL
     Indication: COR PULMONALE CHRONIC
     Dosage: 90-108 MCG (15-18 BREATHS) QID
     Route: 055
     Dates: start: 20101018
  8. REVATIO [Concomitant]
     Active Substance: SILDENAFIL CITRATE
  9. OXYGEN. [Concomitant]
     Active Substance: OXYGEN
  10. LASIX [Concomitant]
     Active Substance: FUROSEMIDE
  11. ADCIRCA [Concomitant]
     Active Substance: TADALAFIL

REACTIONS (5)
  - Lung disorder [Unknown]
  - Oesophagitis [Recovering/Resolving]
  - Bronchitis [Recovering/Resolving]
  - Gastrooesophageal reflux disease [Unknown]
  - Infection [Unknown]

NARRATIVE: CASE EVENT DATE: 20141012
